FAERS Safety Report 21065706 (Version 1)
Quarter: 2022Q3

REPORT INFORMATION
  Report Type: Spontaneous
  Country: FR (occurrence: FR)
  Receive Date: 20220711
  Receipt Date: 20220711
  Transmission Date: 20221027
  Serious: Yes (Hospitalization)
  Sender: FDA-Public Use
  Company Number: FR-SCALL-2022-FR-000123

PATIENT
  Age: 82 Year
  Sex: Male

DRUGS (2)
  1. RABEPRAZOLE SODIUM [Suspect]
     Active Substance: RABEPRAZOLE SODIUM
     Indication: Gastric ulcer
     Dosage: 40 MG, 1 D
     Route: 048
     Dates: start: 20220401, end: 20220517
  2. POTELIGEO [Suspect]
     Active Substance: MOGAMULIZUMAB-KPKC
     Route: 042
     Dates: start: 20191022

REACTIONS (1)
  - Erythema annulare [Not Recovered/Not Resolved]

NARRATIVE: CASE EVENT DATE: 20220509
